FAERS Safety Report 6750445-X (Version None)
Quarter: 2010Q2

REPORT INFORMATION
  Report Type: 
  Country: None (occurrence: None)
  Receive Date: 20100527
  Receipt Date: 20100517
  Transmission Date: 20101027
  Serious: Yes (Hospitalization)
  Sender: FDA-Public Use
  Company Number: TCI2010A01123

PATIENT
  Age: 60 Year
  Sex: Female

DRUGS (5)
  1. ACTOS [Suspect]
     Indication: TYPE 2 DIABETES MELLITUS
     Dosage: 15 MG (15 MG, 1 - 2) PER ORAL
     Route: 048
     Dates: start: 20090817
  2. MP-513           (CODE NOT BROKEN) (ORAL ANTIDIABETICS) [Suspect]
     Indication: TYPE 2 DIABETES MELLITUS
     Dosage: MP-513 OR PLACEBO (1 IN 1 D) PER ORAL
     Route: 048
     Dates: start: 20100213
  3. PRAVASTATIN [Concomitant]
  4. AMLODIPINE BESYLATE [Concomitant]
  5. MICARDIS [Concomitant]

REACTIONS (1)
  - HAEMORRHOID OPERATION [None]
